FAERS Safety Report 23459384 (Version 2)
Quarter: 2024Q1

REPORT INFORMATION
  Report Type: Spontaneous
  Country: NO (occurrence: NO)
  Receive Date: 20240131
  Receipt Date: 20240202
  Transmission Date: 20240410
  Serious: Yes (Hospitalization, Other)
  Sender: FDA-Public Use
  Company Number: None

PATIENT
  Age: 36 Year
  Sex: Female

DRUGS (1)
  1. WEGOVY [Suspect]
     Active Substance: SEMAGLUTIDE
     Indication: Overweight
     Dosage: 0.5 MG, QW
     Route: 058
     Dates: start: 202308, end: 20231218

REACTIONS (3)
  - Appendicitis [Recovered/Resolved]
  - Laparoscopic surgery [Unknown]
  - Constipation [Unknown]

NARRATIVE: CASE EVENT DATE: 20231217
